FAERS Safety Report 9698977 (Version 2)
Quarter: 2013Q4

REPORT INFORMATION
  Report Type: Spontaneous
  Country: US (occurrence: US)
  Receive Date: 20131120
  Receipt Date: 20131120
  Transmission Date: 20140711
  Serious: Yes (Life-Threatening, Hospitalization)
  Sender: FDA-Public Use
  Company Number: US-BANPHARM-20131880

PATIENT
  Sex: Female
  Weight: 65.77 kg

DRUGS (1)
  1. ALEVE LIQUID GELS 220 MG [Suspect]
     Dosage: 1 DF, EVERY 12 HOURS,
     Route: 048
     Dates: start: 201311, end: 20131105

REACTIONS (1)
  - Rectal haemorrhage [Not Recovered/Not Resolved]
